FAERS Safety Report 16662195 (Version 2)
Quarter: 2020Q1

REPORT INFORMATION
  Report Type: Report from Study
  Country: US (occurrence: US)
  Receive Date: 20190802
  Receipt Date: 20200129
  Transmission Date: 20200409
  Serious: No
  Sender: FDA-Public Use
  Company Number: US-EXELIXIS-CABO-19019213

PATIENT
  Age: 66 Year
  Sex: Male
  Weight: 89.34 kg

DRUGS (6)
  1. CABOMETYX [Suspect]
     Active Substance: CABOZANTINIB S-MALATE
     Dosage: 20 MG, QD
  2. CABOMETYX [Suspect]
     Active Substance: CABOZANTINIB S-MALATE
     Dosage: 60 MG, QD
     Route: 048
  3. SOVALDI [Concomitant]
     Active Substance: SOFOSBUVIR
  4. RIBAVIRIN. [Concomitant]
     Active Substance: RIBAVIRIN
  5. MAVYRET [Concomitant]
     Active Substance: GLECAPREVIR\PIBRENTASVIR
  6. CABOMETYX [Suspect]
     Active Substance: CABOZANTINIB S-MALATE
     Indication: HEPATOCELLULAR CARCINOMA
     Dosage: 60 MG, QD
     Route: 048
     Dates: start: 20190219, end: 20190304

REACTIONS (7)
  - Scrotal exfoliation [Unknown]
  - Genital rash [Unknown]
  - Stomatitis [Unknown]
  - Skin ulcer [Unknown]
  - Rash [Unknown]
  - Fatigue [Unknown]
  - Dyspnoea [Recovered/Resolved]

NARRATIVE: CASE EVENT DATE: 20190301
